FAERS Safety Report 7552041-3 (Version None)
Quarter: 2011Q2

REPORT INFORMATION
  Report Type: 
  Country: None (occurrence: None)
  Receive Date: 20110616
  Receipt Date: 20110606
  Transmission Date: 20111010
  Serious: Yes (Hospitalization)
  Sender: FDA-Public Use
  Company Number: ES-B.I. PHARMACEUTICALS,INC./RIDGEFIELD-2011-ES-00141ES

PATIENT
  Age: 70 Year
  Sex: Female

DRUGS (2)
  1. PONTALSIC [Concomitant]
     Indication: KNEE ARTHROPLASTY
     Dosage: 3 TABLETS/DAY. STRENGHT: 37.5MG/325MG
     Route: 048
     Dates: start: 20110419
  2. PRADAXA [Suspect]
     Indication: THROMBOSIS PROPHYLAXIS
     Dosage: 220 MG
     Route: 048
     Dates: start: 20110418, end: 20110424

REACTIONS (2)
  - DEEP VEIN THROMBOSIS [None]
  - DRUG INEFFECTIVE [None]
